FAERS Safety Report 8086034-7 (Version None)
Quarter: 2012Q1

REPORT INFORMATION
  Report Type: 
  Country: None (occurrence: None)
  Receive Date: 20120128
  Receipt Date: 20110609
  Transmission Date: 20120608
  Serious: No
  Sender: FDA-Public Use
  Company Number: US-ABBOTT-11P-163-0731528-00

PATIENT
  Age: 26 Year
  Sex: Female

DRUGS (3)
  1. PATIENT DECLNES TO PROVIDE [Concomitant]
  2. HUMIRA [Suspect]
     Indication: ANKYLOSING SPONDYLITIS
     Dates: start: 20090601, end: 20090701
  3. HUMIRA [Suspect]
     Dates: start: 20110501

REACTIONS (2)
  - EXPIRED DRUG ADMINISTERED [None]
  - SINUSITIS [None]
